FAERS Safety Report 15625304 (Version 2)
Quarter: 2021Q4

REPORT INFORMATION
  Report Type: Report from Study
  Country: US (occurrence: US)
  Receive Date: 20181116
  Receipt Date: 20211005
  Transmission Date: 20220304
  Serious: No
  Sender: FDA-Public Use
  Company Number: PHEH2018US047914

PATIENT
  Sex: Female

DRUGS (2)
  1. SIMBRINZA [Suspect]
     Active Substance: BRIMONIDINE TARTRATE\BRINZOLAMIDE
     Indication: Intraocular pressure increased
     Route: 047
     Dates: start: 20181008
  2. TRAVATAN Z [Suspect]
     Active Substance: TRAVOPROST
     Indication: Intraocular pressure increased
     Dosage: UNK
     Route: 047
     Dates: start: 20181008

REACTIONS (1)
  - Dry eye [Unknown]
